FAERS Safety Report 13417698 (Version 1)
Quarter: 2017Q2

REPORT INFORMATION
  Report Type: Spontaneous
  Country: BR (occurrence: BR)
  Receive Date: 20170406
  Receipt Date: 20170406
  Transmission Date: 20170830
  Serious: Yes (Hospitalization)
  Sender: FDA-Public Use
  Company Number: PHHY2017BR048645

PATIENT
  Age: 82 Year
  Sex: Female
  Weight: 39 kg

DRUGS (1)
  1. DIOVAN HCT [Suspect]
     Active Substance: HYDROCHLOROTHIAZIDE\VALSARTAN
     Indication: HYPERTENSION
     Dosage: 1 DF, QD
     Route: 048
     Dates: end: 20170326

REACTIONS (6)
  - Dizziness [Recovering/Resolving]
  - Disorientation [Recovering/Resolving]
  - Malaise [Recovering/Resolving]
  - Blood sodium decreased [Recovering/Resolving]
  - Nausea [Recovering/Resolving]
  - Urine sodium increased [Recovering/Resolving]

NARRATIVE: CASE EVENT DATE: 20170326
